FAERS Safety Report 25626156 (Version 1)
Quarter: 2025Q3

REPORT INFORMATION
  Report Type: Report from Study
  Country: US (occurrence: US)
  Receive Date: 20250731
  Receipt Date: 20250731
  Transmission Date: 20251020
  Serious: Yes (Hospitalization)
  Sender: ABBVIE
  Company Number: US-ABBVIE-6103571

PATIENT
  Age: 59 Year
  Sex: Female

DRUGS (3)
  1. SKYRIZI [Suspect]
     Active Substance: RISANKIZUMAB-RZAA
     Indication: Psoriasis
     Route: 058
     Dates: start: 20250116, end: 20250116
  2. SKYRIZI [Suspect]
     Active Substance: RISANKIZUMAB-RZAA
     Route: 058
     Dates: start: 20250213, end: 20250213
  3. SKYRIZI [Suspect]
     Active Substance: RISANKIZUMAB-RZAA
     Dosage: STRENGTH 150MG/ML?FIRST ADMIN DATE: 2025?SOLUTION FOR INJECTION IN PRE-FILLED PEN
     Route: 058

REACTIONS (5)
  - Hiatus hernia [Unknown]
  - Sinus congestion [Recovering/Resolving]
  - Oropharyngeal pain [Unknown]
  - Paranasal sinus hypersecretion [Recovering/Resolving]
  - Facial discomfort [Unknown]

NARRATIVE: CASE EVENT DATE: 20250101
